FAERS Safety Report 5679681-0 (Version None)
Quarter: 2008Q1

REPORT INFORMATION
  Report Type: 
  Country: None (occurrence: None)
  Receive Date: 20080320
  Receipt Date: 20080311
  Transmission Date: 20080703
  Serious: Yes (Death)
  Sender: FDA-Public Use
  Company Number: CERZ-1000123

PATIENT
  Age: 2 Year
  Sex: Female
  Weight: 7.3 kg

DRUGS (1)
  1. CEREZYME (IMIGLUCERASE) POWDER FOR SOLUTION FOR INFUSION [Suspect]
     Indication: GAUCHER'S DISEASE
     Dosage: 800 U, INTRAVENOUS
     Route: 042
     Dates: start: 20060718, end: 20080212

REACTIONS (1)
  - TONIC CONVULSION [None]
